FAERS Safety Report 25857839 (Version 1)
Quarter: 2025Q3

REPORT INFORMATION
  Report Type: Spontaneous
  Country: US (occurrence: US)
  Receive Date: 20250929
  Receipt Date: 20250929
  Transmission Date: 20251020
  Serious: No
  Sender: ELI LILLY AND COMPANY
  Company Number: US-ELI_LILLY_AND_COMPANY-US202509018324

PATIENT
  Age: 81 Year
  Sex: Female

DRUGS (1)
  1. VERZENIO [Suspect]
     Active Substance: ABEMACICLIB
     Indication: Breast cancer female
     Dosage: 150 MG, BID
     Route: 065

REACTIONS (13)
  - Abdominal discomfort [Recovered/Resolved]
  - Limb discomfort [Unknown]
  - Arthropathy [Unknown]
  - Tibia fracture [Recovered/Resolved]
  - Fibula fracture [Recovered/Resolved]
  - Renal function test abnormal [Recovering/Resolving]
  - Liver function test abnormal [Recovering/Resolving]
  - Feeling hot [Unknown]
  - Skin discolouration [Recovering/Resolving]
  - Headache [Unknown]
  - Vomiting [Unknown]
  - Nausea [Unknown]
  - Fatigue [Unknown]
